FAERS Safety Report 23584231 (Version 5)
Quarter: 2025Q2

REPORT INFORMATION
  Report Type: Spontaneous
  Country: US (occurrence: US)
  Receive Date: 20240301
  Receipt Date: 20250514
  Transmission Date: 20250717
  Serious: Yes (Other)
  Sender: SANOFI AVENTIS
  Company Number: US-SA-SAC20240228000043

PATIENT
  Age: 79 Year
  Sex: Female
  Weight: 84.09 kg

DRUGS (27)
  1. REZUROCK [Suspect]
     Active Substance: BELUMOSUDIL
     Indication: Graft versus host disease
     Route: 048
     Dates: start: 202312
  2. REZUROCK [Suspect]
     Active Substance: BELUMOSUDIL
     Dosage: 200 MG, QD
     Route: 048
  3. AMLODIPINE [Concomitant]
     Active Substance: AMLODIPINE BESYLATE
  4. AMLODIPINE [Concomitant]
     Active Substance: AMLODIPINE BESYLATE
  5. AZITHROMYCIN [Concomitant]
     Active Substance: AZITHROMYCIN
  6. AZITHROMYCIN [Concomitant]
     Active Substance: AZITHROMYCIN
  7. AZITHROMYCIN [Concomitant]
     Active Substance: AZITHROMYCIN
  8. BIOTIN [Concomitant]
     Active Substance: BIOTIN
  9. BIOTIN [Concomitant]
     Active Substance: BIOTIN
  10. CALCIUM [Concomitant]
     Active Substance: CALCIUM
  11. EZETIMIBE [Concomitant]
     Active Substance: EZETIMIBE
  12. EZETIMIBE [Concomitant]
     Active Substance: EZETIMIBE
  13. EZETIMIBE [Concomitant]
     Active Substance: EZETIMIBE
  14. FOLIC ACID [Concomitant]
     Active Substance: FOLIC ACID
  15. IRON [Concomitant]
     Active Substance: IRON
  16. LEVOTHYROXINE [Concomitant]
     Active Substance: LEVOTHYROXINE
  17. LEVOTHYROXINE [Concomitant]
     Active Substance: LEVOTHYROXINE
  18. LOSARTAN [Concomitant]
     Active Substance: LOSARTAN
  19. LOSARTAN [Concomitant]
     Active Substance: LOSARTAN
  20. POTASSIUM [Concomitant]
     Active Substance: POTASSIUM
  21. PREDNISONE [Concomitant]
     Active Substance: PREDNISONE
  22. VITAMIN D3 [Concomitant]
     Active Substance: CHOLECALCIFEROL
  23. VITAMIN E [Concomitant]
     Active Substance: .ALPHA.-TOCOPHEROL
  24. VALACYCLOVIR [Concomitant]
     Active Substance: VALACYCLOVIR HYDROCHLORIDE
  25. VITAMIN B12 [Concomitant]
     Active Substance: CYANOCOBALAMIN
  26. XARELTO [Concomitant]
     Active Substance: RIVAROXABAN
  27. CALCIUM;MAGNESIUM [Concomitant]

REACTIONS (6)
  - Thrombosis [Unknown]
  - Pulmonary thrombosis [Unknown]
  - Alopecia [Not Recovered/Not Resolved]
  - Gait disturbance [Not Recovered/Not Resolved]
  - Pain in extremity [Not Recovered/Not Resolved]
  - Muscle spasms [Not Recovered/Not Resolved]
